FAERS Safety Report 5368420-9 (Version None)
Quarter: 2007Q2

REPORT INFORMATION
  Report Type: 
  Country: None (occurrence: None)
  Receive Date: 20070622
  Receipt Date: 20070622
  Transmission Date: 20071010
  Serious: Yes (Other)
  Sender: FDA-Public Use
  Company Number: None

PATIENT
  Age: 51 Year
  Sex: Male

DRUGS (1)
  1. OXYCODONE HCL [Suspect]
     Indication: PAIN

REACTIONS (4)
  - BLOOD PRESSURE INCREASED [None]
  - COLD SWEAT [None]
  - HYPERHIDROSIS [None]
  - TACHYCARDIA [None]
